FAERS Safety Report 9519610 (Version 1)
Quarter: 2013Q1

REPORT INFORMATION
  Report Type: Spontaneous
  Country: US (occurrence: None)
  Receive Date: 20130305
  Receipt Date: 20130305
  Transmission Date: 20140127
  Serious: Yes (Hospitalization)
  Sender: FDA-Public Use
  Company Number: 163-21880-12080822

PATIENT
  Age: 58 Year
  Sex: Male

DRUGS (15)
  1. REVLIMID [Suspect]
     Indication: PLASMA CELL MYELOMA
     Dosage: 21 IN 28 D
     Route: 048
     Dates: start: 20120714, end: 20120724
  2. HYDROXYZINE HYDROCHLORIDE (10 MILLIGRAM, TABLETS) [Concomitant]
  3. LEVOFLOXACIN (LEVOFLOXACIN) (500 MILLIGRAM, TABLETS) [Concomitant]
  4. MAGNESIUM GLUCONATE (MAGNESIUM GLUCONATE) (500 MILLIGRAM, TABLETS) [Concomitant]
  5. LIDOCAINE (LIDOCAINE) (5 PERCENT, POULTICE OR PATCH) [Concomitant]
  6. LORAZEPAM (LORAZEPAM) (0.5 MILLIGRAM, TABLETS) [Concomitant]
  7. POLYETHYLENE GLYCOL (MACROGOL) (17 GRAM, TABLETS) [Concomitant]
  8. TRAZODONE (TRAZODONE) (50 MILLIGRAM, TABLETS) [Concomitant]
  9. GABAPENTIN (GABAPENTIN) (600 MEGABECQUEREL(S), TABLETS) [Concomitant]
  10. ALBUTEROL (SALBUTAMOL) (90 MICROGRAM, INHALANT) [Concomitant]
  11. WARFARIN (WARFARIN) (2.5  MILLIGRAM, TABLETS) [Concomitant]
  12. DEXAMETHASONE (DEXAMETHASONE) [Concomitant]
  13. COUMADIN (WARFARIN SODIUM) [Concomitant]
  14. TUMS (CALCIUM CARBONATE) [Concomitant]
  15. ZOMETA (ZOLEDRONIC ACID) [Concomitant]

REACTIONS (5)
  - Nausea [None]
  - Vomiting [None]
  - Renal failure acute [None]
  - Dehydration [None]
  - Hypocalcaemia [None]
